FAERS Safety Report 17555912 (Version 4)
Quarter: 2020Q3

REPORT INFORMATION
  Report Type: Spontaneous
  Country: NL (occurrence: NL)
  Receive Date: 20200318
  Receipt Date: 20200820
  Transmission Date: 20201102
  Serious: Yes (Death, Life-Threatening, Hospitalization, Other)
  Sender: FDA-Public Use
  Company Number: NL-MYLANLABS-2020M1027250

PATIENT
  Age: 77 Year
  Sex: Male

DRUGS (14)
  1. CLARITHROMYCIN. [Suspect]
     Active Substance: CLARITHROMYCIN
     Indication: CONFUSIONAL STATE
     Dosage: 250 MG, 2X/DAY
     Route: 048
  2. METRONIDAZOLE. [Suspect]
     Active Substance: METRONIDAZOLE
     Indication: BACTERIAL INFECTION
     Dosage: 500 MG, 3X/DAY (500 MG, TID)
     Route: 042
  3. CEFTRIAXONE SODIUM. [Suspect]
     Active Substance: CEFTRIAXONE SODIUM
     Indication: BRAIN ABSCESS
     Dosage: 2 G, 2X/DAY (2 G, BID)
     Route: 042
  4. PENICILLIN NOS [Suspect]
     Active Substance: PENICILLIN
     Indication: BRAIN ABSCESS
     Dosage: 12 INTERNATIONAL UNIT, QD
     Route: 042
  5. VANCOMYCIN [Suspect]
     Active Substance: VANCOMYCIN
     Indication: STREPTOCOCCAL INFECTION
     Dosage: UNK
     Route: 041
  6. CLARITHROMYCIN. [Suspect]
     Active Substance: CLARITHROMYCIN
     Indication: BRAIN ABSCESS
     Dosage: 500 MILLIGRAM, QD (250 MG, BID)
     Route: 048
  7. CLARITHROMYCIN. [Suspect]
     Active Substance: CLARITHROMYCIN
     Indication: NIGHT SWEATS
     Dosage: 250 MG, FREQ: 2 DAY; INTERVAL: 1
     Route: 048
  8. PENICILLIN G HOECHST [Suspect]
     Active Substance: PENICILLIN G
     Indication: BRAIN ABSCESS
     Dosage: 12 INTERNATIONAL UNIT, QD (12 MILLION IU, QD)
     Route: 065
  9. AMOXICILLIN. [Suspect]
     Active Substance: AMOXICILLIN
     Indication: BRAIN ABSCESS
     Dosage: 2 G, SIX TIMES DAILY
     Route: 042
  10. METRONIDAZOLE. [Suspect]
     Active Substance: METRONIDAZOLE
     Indication: BRAIN ABSCESS
     Dosage: UNK
     Route: 065
  11. CEFTRIAXONE SODIUM. [Suspect]
     Active Substance: CEFTRIAXONE SODIUM
     Indication: PRODUCT USED FOR UNKNOWN INDICATION
     Dosage: UNK
  12. VANCOMYCIN [Suspect]
     Active Substance: VANCOMYCIN
     Indication: BRAIN ABSCESS
     Dosage: UNK
     Route: 042
  13. CLARITHROMYCIN. [Suspect]
     Active Substance: CLARITHROMYCIN
     Indication: CONFUSIONAL STATE
     Dosage: 250 MILLIGRAM, BID
     Route: 048
  14. CLARITHROMYCIN. [Suspect]
     Active Substance: CLARITHROMYCIN
     Indication: HEADACHE
     Dosage: UNK
     Route: 065

REACTIONS (15)
  - Respiratory failure [Fatal]
  - Pruritus [Fatal]
  - Multiple organ dysfunction syndrome [Fatal]
  - Acute hepatic failure [Fatal]
  - Skin exfoliation [Fatal]
  - Erythema [Fatal]
  - Drug reaction with eosinophilia and systemic symptoms [Fatal]
  - Dyspnoea [Fatal]
  - Haemodynamic instability [Fatal]
  - Oliguria [Fatal]
  - Renal failure [Fatal]
  - Disorientation [Fatal]
  - Acute kidney injury [Fatal]
  - Jaundice [Fatal]
  - Pyrexia [Fatal]
